FAERS Safety Report 5159890-X (Version None)
Quarter: 2006Q4

REPORT INFORMATION
  Report Type: 
  Country: None (occurrence: None)
  Receive Date: 20061129
  Receipt Date: 20060412
  Transmission Date: 20070319
  Serious: No
  Sender: FDA-Public Use
  Company Number: US-GLAXOSMITHKLINE-A0601576A

PATIENT
  Age: 29 Year
  Sex: Female

DRUGS (2)
  1. WELLBUTRIN SR [Suspect]
     Indication: DEPRESSION
     Dosage: 150MG PER DAY
     Route: 048
     Dates: start: 20060301
  2. WELLBUTRIN SR [Suspect]
     Dosage: 300MG PER DAY
     Route: 048
     Dates: start: 20040101

REACTIONS (3)
  - AGITATION [None]
  - DYSPNOEA [None]
  - IRRITABILITY [None]
